FAERS Safety Report 14201408 (Version 1)
Quarter: 2017Q4

REPORT INFORMATION
  Report Type: Spontaneous
  Country: US (occurrence: US)
  Receive Date: 20171117
  Receipt Date: 20171117
  Transmission Date: 20180321
  Serious: No
  Sender: FDA-Public Use
  Company Number: US-PERRIGO-17US002902

PATIENT
  Age: 71 Year
  Sex: Female
  Weight: 55.33 kg

DRUGS (6)
  1. NORCO [Concomitant]
     Active Substance: ACETAMINOPHEN\HYDROCODONE BITARTRATE
     Indication: PAIN
     Dosage: UNK
     Route: 065
     Dates: start: 2013
  2. LUVOX [Concomitant]
     Active Substance: FLUVOXAMINE MALEATE
     Indication: ANXIETY
     Dosage: UNK
     Route: 065
     Dates: start: 2014
  3. KLONOPIN [Concomitant]
     Active Substance: CLONAZEPAM
     Indication: DEPRESSION
  4. LUVOX [Concomitant]
     Active Substance: FLUVOXAMINE MALEATE
     Indication: DEPRESSION
  5. KLONOPIN [Concomitant]
     Active Substance: CLONAZEPAM
     Indication: ANXIETY
     Dosage: UNK
     Route: 065
     Dates: start: 2014
  6. POLYETHYLENE GLYCOL 3350. [Suspect]
     Active Substance: POLYETHYLENE GLYCOL 3350
     Indication: CONSTIPATION
     Dosage: 51 G, QD
     Route: 048
     Dates: start: 2010, end: 20170329

REACTIONS (3)
  - Drug effect decreased [Unknown]
  - Overdose [Recovered/Resolved]
  - Incorrect drug administration duration [Recovered/Resolved]

NARRATIVE: CASE EVENT DATE: 2010
